FAERS Safety Report 8311708-X (Version None)
Quarter: 2012Q2

REPORT INFORMATION
  Report Type: 
  Country: None (occurrence: None)
  Receive Date: 20120425
  Receipt Date: 20120419
  Transmission Date: 20120825
  Serious: No
  Sender: FDA-Public Use
  Company Number: US-PFIZER INC-2012097989

PATIENT
  Sex: Female

DRUGS (10)
  1. ZOLOFT [Suspect]
     Dosage: UNK
     Dates: start: 20120417
  2. VITAMIN D [Concomitant]
     Dosage: 50000 UNITS, WEEKLY
  3. ONGLYZA [Concomitant]
     Indication: TYPE 2 DIABETES MELLITUS
     Dosage: 2.5 MG, AS NEEDED
  4. ACETYLSALICYLIC ACID [Concomitant]
     Dosage: 81 MG, 1X/DAY
  5. CYMBALTA [Suspect]
     Indication: ANXIETY
     Dosage: UNK
     Dates: start: 20120413, end: 20120415
  6. LEVOTHYROXINE [Concomitant]
     Indication: HYPOTHYROIDISM
     Dosage: 50 UG, 1X/DAY
  7. CRESTOR [Concomitant]
     Dosage: 10 MG, 1X/DAY
  8. TOPROL-XL [Concomitant]
     Dosage: 25 MG, 1X/DAY
  9. ZOLOFT [Suspect]
     Indication: ANXIETY
     Dosage: 50 MG, 1X/DAY
     Route: 048
     Dates: start: 20090101, end: 20120412
  10. RANITIDINE [Concomitant]
     Indication: GASTROOESOPHAGEAL REFLUX DISEASE
     Dosage: 150 MG, 2X/DAY

REACTIONS (5)
  - MALAISE [None]
  - NAUSEA [None]
  - DRUG INTOLERANCE [None]
  - TACHYCARDIA [None]
  - HEADACHE [None]
